FAERS Safety Report 12145625 (Version 1)
Quarter: 2016Q1

REPORT INFORMATION
  Report Type: Report from Study
  Country: US (occurrence: US)
  Receive Date: 20160304
  Receipt Date: 20160304
  Transmission Date: 20160526
  Serious: No
  Sender: FDA-Public Use
  Company Number: US-ABBVIE-15P-163-1429579-00

PATIENT
  Age: 35 Year
  Sex: Male
  Weight: 94.43 kg

DRUGS (5)
  1. PERCOCET [Concomitant]
     Active Substance: ACETAMINOPHEN\OXYCODONE HYDROCHLORIDE
     Indication: PRODUCT USED FOR UNKNOWN INDICATION
     Dosage: 7.5/325
     Route: 065
  2. ANDROGEL [Suspect]
     Active Substance: TESTOSTERONE
     Dosage: 2.5 GRAM GEL PACKET, 1/2 TO 1 PKT DAILY, APPLIED EVENLY TO BOTH SHOULDERS
     Route: 061
  3. TESTOSTERONE CYPIONATE. [Concomitant]
     Active Substance: TESTOSTERONE CYPIONATE
     Indication: TESTICULAR FAILURE
     Route: 065
     Dates: start: 20151210
  4. ANDROGEL [Suspect]
     Active Substance: TESTOSTERONE
     Indication: HYPOGONADISM
     Dosage: 2.5 GRAM GEL PACKET, APPLY EXTERNALLY TO SPECIFIC AREA OF THE SKIN
     Route: 061
  5. ANDROGEL [Suspect]
     Active Substance: TESTOSTERONE
     Dosage: 2.5 GRAM GEL PACKET, APPLY EXTERNALLY TO SPECIFIC AREA OF THE SKIN
     Route: 061

REACTIONS (3)
  - Blood cholesterol increased [Recovered/Resolved]
  - Cardiac disorder [Unknown]
  - Hypertension [Unknown]

NARRATIVE: CASE EVENT DATE: 201503
